FAERS Safety Report 4333962-1 (Version None)
Quarter: 2004Q2

REPORT INFORMATION
  Report Type: 
  Country: None (occurrence: None)
  Receive Date: 20040402
  Receipt Date: 20040329
  Transmission Date: 20050107
  Serious: Yes (Hospitalization)
  Sender: FDA-Public Use
  Company Number: OMPQ-PR-0403S-0220

PATIENT
  Age: 24 Year
  Sex: Female

DRUGS (1)
  1. OMNIPAQUE 180 [Suspect]
     Indication: MALAISE
     Dosage: 100 ML, SINGLE DOSE, I.V.
     Route: 042
     Dates: start: 20040323, end: 20040323

REACTIONS (2)
  - DIALYSIS [None]
  - RENAL FAILURE [None]
